FAERS Safety Report 9775723 (Version 2)
Quarter: 2014Q1

REPORT INFORMATION
  Report Type: Spontaneous
  Country: GB (occurrence: None)
  Receive Date: 20131218
  Receipt Date: 20140117
  Transmission Date: 20141002
  Serious: Yes (Hospitalization)
  Sender: FDA-Public Use
  Company Number: 2013AP010307

PATIENT
  Age: 62 Year
  Sex: Female

DRUGS (6)
  1. PERINDOPRIL (PERINDOPRIL) [Suspect]
  2. LYRICA (PREGABALIN) [Suspect]
     Indication: NEURALGIA
     Dosage: 100 MG; UNKNOWN; BID
     Dates: start: 2008
  3. FUROSEMIDE (FUROSEMIDE) [Concomitant]
  4. LIDOCAINE (LIDOCAINE)? [Concomitant]
  5. DULOXETINE (DULOXETINE) (DULOXETINE) [Concomitant]
  6. GABAPENTIN (GABAPENTIN) [Concomitant]

REACTIONS (10)
  - Cardiomyopathy [None]
  - Disturbance in attention [None]
  - Cardiac failure congestive [None]
  - Depression [None]
  - Skin irritation [None]
  - Drug ineffective [None]
  - Memory impairment [None]
  - Nerve injury [None]
  - Skin sensitisation [None]
  - Drug interaction [None]
